FAERS Safety Report 12633127 (Version 2)
Quarter: 2016Q3

REPORT INFORMATION
  Report Type: Spontaneous
  Country: US (occurrence: US)
  Receive Date: 20160808
  Receipt Date: 20160808
  Transmission Date: 20161109
  Serious: No
  Sender: FDA-Public Use
  Company Number: US-BEH-2016058513

PATIENT
  Sex: Female
  Weight: 24 kg

DRUGS (20)
  1. DIPHENHYDRAMINE. [Concomitant]
     Active Substance: DIPHENHYDRAMINE
  2. PULMICORT TURBUHALER [Concomitant]
     Active Substance: BUDESONIDE
  3. QVAR [Concomitant]
     Active Substance: BECLOMETHASONE DIPROPIONATE
  4. FLONASE [Concomitant]
     Active Substance: FLUTICASONE PROPIONATE
  5. ZYRTEC [Concomitant]
     Active Substance: CETIRIZINE HYDROCHLORIDE
  6. CARNITOR [Concomitant]
     Active Substance: LEVOCARNITINE
  7. HIZENTRA [Suspect]
     Active Substance: HUMAN IMMUNOGLOBULIN G
     Route: 058
  8. VITAMIN C [Concomitant]
     Active Substance: ASCORBIC ACID
  9. COENZYME [Concomitant]
     Active Substance: UBIDECARENONE
  10. EPIPEN [Concomitant]
     Active Substance: EPINEPHRINE
  11. CORN STARCH [Concomitant]
     Active Substance: STARCH, CORN
  12. VITAMIN D [Concomitant]
     Active Substance: CHOLECALCIFEROL
  13. MIRALAX [Concomitant]
     Active Substance: POLYETHYLENE GLYCOL 3350
  14. IBUPROFEN. [Concomitant]
     Active Substance: IBUPROFEN
  15. FERROUS SULFATE. [Concomitant]
     Active Substance: FERROUS SULFATE
  16. ALPHA LIPOIC ACID [Concomitant]
     Active Substance: .ALPHA.-LIPOIC ACID
  17. POLY-VI-SOL [Concomitant]
  18. RIBOFLAVIN [Concomitant]
     Active Substance: RIBOFLAVIN
  19. PREVACID [Concomitant]
     Active Substance: LANSOPRAZOLE
  20. LMX [Concomitant]
     Active Substance: LIDOCAINE

REACTIONS (2)
  - Sinusitis [Unknown]
  - Rash [Unknown]
